FAERS Safety Report 19213547 (Version 3)
Quarter: 2021Q3

REPORT INFORMATION
  Report Type: Report from Study
  Country: US (occurrence: US)
  Receive Date: 20210504
  Receipt Date: 20210701
  Transmission Date: 20211014
  Serious: Yes (Other)
  Sender: FDA-Public Use
  Company Number: US-BRISTOL-MYERS SQUIBB COMPANY-BMS-2021-043180

PATIENT
  Age: 100 Year
  Sex: Female

DRUGS (1)
  1. APIXABAN [Suspect]
     Active Substance: APIXABAN
     Indication: PRODUCT USED FOR UNKNOWN INDICATION
     Dosage: STRENGTH: 2.5 MG; 1 TABLET TWICE DAILY
     Route: 048

REACTIONS (2)
  - Atrial fibrillation [Unknown]
  - Cerebrovascular accident [Unknown]
